FAERS Safety Report 17643714 (Version 1)
Quarter: 2020Q2

REPORT INFORMATION
  Report Type: Spontaneous
  Country: US (occurrence: US)
  Receive Date: 20200408
  Receipt Date: 20200408
  Transmission Date: 20200713
  Serious: Yes (Other)
  Sender: FDA-Public Use
  Company Number: US-ELI_LILLY_AND_COMPANY-US202003012980

PATIENT
  Age: 92 Year
  Sex: Female

DRUGS (1)
  1. HUMALOG [Suspect]
     Active Substance: INSULIN LISPRO
     Indication: TYPE 2 DIABETES MELLITUS
     Dosage: UNK, QID
     Route: 058
     Dates: start: 2010

REACTIONS (7)
  - Asthenia [Unknown]
  - Musculoskeletal stiffness [Unknown]
  - Cerebrovascular accident [Unknown]
  - Pain [Unknown]
  - Contusion [Unknown]
  - Fall [Unknown]
  - Gait disturbance [Unknown]

NARRATIVE: CASE EVENT DATE: 20200326
